FAERS Safety Report 5258363-3 (Version None)
Quarter: 2007Q1

REPORT INFORMATION
  Report Type: 
  Country: None (occurrence: None)
  Receive Date: 20070308
  Receipt Date: 20070223
  Transmission Date: 20070707
  Serious: Yes (Hospitalization, Other)
  Sender: FDA-Public Use
  Company Number: PHEH2005US10711

PATIENT
  Age: 54 Year
  Sex: Female
  Weight: 66.213 kg

DRUGS (24)
  1. DIGOXIN [Concomitant]
  2. EFFEXOR [Concomitant]
     Dosage: 75 MG, QD
     Route: 048
  3. CARBOPLATIN [Concomitant]
     Indication: CHEMOTHERAPY
  4. AREDIA [Suspect]
     Indication: BREAST CANCER
     Dosage: 90 MG, UNK
     Dates: start: 20000101, end: 20020305
  5. AREDIA [Suspect]
     Dosage: 30 MG, UNK
     Dates: start: 20021016, end: 20030730
  6. AREDIA [Suspect]
     Dosage: 60 MG, UNK
     Dates: start: 20030820, end: 20050518
  7. AREDIA [Suspect]
     Dosage: 60 MG, ONCE/SINGLE
     Dates: start: 20021002
  8. ZOMETA [Suspect]
     Indication: BREAST CANCER
     Dosage: 4 MG, UNK
     Dates: start: 20020327, end: 20020925
  9. HERCEPTIN [Concomitant]
     Indication: BREAST CANCER RECURRENT
     Dosage: 220 UNK, UNK
  10. EPOETIN NOS [Concomitant]
     Indication: ANAEMIA
     Dosage: 40 UNK, UNK
  11. VITAMIN B-12 [Concomitant]
     Indication: ANAEMIA
     Dosage: 2000 UG, UNK
  12. TAMOXIFEN CITRATE [Concomitant]
     Indication: BREAST CANCER
     Dates: start: 20000101, end: 20050201
  13. ARIMIDEX [Concomitant]
     Indication: BREAST CANCER
  14. ROCEPHIN [Concomitant]
  15. DIFLUCAN [Concomitant]
  16. PAXIL [Concomitant]
     Indication: DEPRESSION
     Dosage: 20 MG, UNK
  17. WELLBUTRIN [Concomitant]
     Indication: DEPRESSION
     Dosage: 150 MG, UNK
  18. AMBIEN [Concomitant]
     Indication: SLEEP DISORDER
     Dosage: 10 MG, PRN
     Route: 048
  19. TYLENOL [Concomitant]
     Indication: ARTHRALGIA
  20. KLONOPIN [Concomitant]
     Indication: SLEEP DISORDER
     Dosage: 0.5 MG, QHS
  21. ANZEMET [Concomitant]
     Indication: PROPHYLAXIS OF NAUSEA AND VOMITING
  22. BENADRYL [Concomitant]
     Dosage: 25 MG, UNK
  23. ATIVAN [Concomitant]
     Dosage: 1 MG, UNK
  24. SOLU-MEDROL [Concomitant]
     Dosage: 62.5 MG, UNK

REACTIONS (58)
  - ABSCESS DRAINAGE [None]
  - ACUTE MYELOID LEUKAEMIA [None]
  - BLOOD CHOLESTEROL INCREASED [None]
  - BONE DENSITY DECREASED [None]
  - BONE DISORDER [None]
  - BONE MARROW FAILURE [None]
  - BONE SCAN ABNORMAL [None]
  - CATHETER REMOVAL [None]
  - CATHETERISATION VENOUS [None]
  - CEREBRAL ISCHAEMIA [None]
  - COUGH [None]
  - DENTAL CARIES [None]
  - ENDODONTIC PROCEDURE [None]
  - EXOSTOSIS [None]
  - FATIGUE [None]
  - FIBROSIS [None]
  - FURUNCLE [None]
  - HERPES ZOSTER [None]
  - HYPERBARIC OXYGEN THERAPY [None]
  - IMPAIRED HEALING [None]
  - INFECTION [None]
  - INFLAMMATION [None]
  - INJURY [None]
  - INSOMNIA [None]
  - JAW FRACTURE [None]
  - JAW OPERATION [None]
  - LARYNGITIS [None]
  - LOW DENSITY LIPOPROTEIN INCREASED [None]
  - LYMPHADENOPATHY [None]
  - MANDIBULECTOMY [None]
  - MASTECTOMY [None]
  - NASOPHARYNGITIS [None]
  - ORAL PAIN [None]
  - OSTEOMYELITIS [None]
  - OSTEONECROSIS [None]
  - PATHOLOGICAL FRACTURE [None]
  - PLATELET COUNT DECREASED [None]
  - POOR PERIPHERAL CIRCULATION [None]
  - PRIMARY SEQUESTRUM [None]
  - PULPITIS DENTAL [None]
  - PURULENT DISCHARGE [None]
  - PYREXIA [None]
  - RADIATION INJURY [None]
  - RHINITIS [None]
  - SENSITIVITY OF TEETH [None]
  - SINUS DISORDER [None]
  - SINUSITIS [None]
  - STAPHYLOCOCCAL ABSCESS [None]
  - STAPHYLOCOCCAL INFECTION [None]
  - SURGERY [None]
  - SWELLING [None]
  - TENDERNESS [None]
  - TOOTH ABSCESS [None]
  - TOOTH EXTRACTION [None]
  - TUMOUR INVASION [None]
  - VERTIGO [None]
  - VOCAL CORD THICKENING [None]
  - WOUND DEBRIDEMENT [None]
